FAERS Safety Report 9484255 (Version 1)
Quarter: 2013Q3

REPORT INFORMATION
  Report Type: Spontaneous
  Country: US (occurrence: US)
  Receive Date: 20130828
  Receipt Date: 20130828
  Transmission Date: 20140515
  Serious: Yes (Other)
  Sender: FDA-Public Use
  Company Number: US-AMGEN-KDL401156

PATIENT
  Sex: Female
  Weight: 79.5 kg

DRUGS (5)
  1. ENBREL [Suspect]
     Indication: PRODUCT USED FOR UNKNOWN INDICATION
     Dosage: 50 MG, QWK
     Route: 058
  2. METHOTREXATE [Concomitant]
     Dosage: 2.5 MG, UNK
  3. ATORVASTATIN CALCIUM [Concomitant]
     Dosage: 10 MG, UNK
  4. FOLIC ACID [Concomitant]
     Dosage: 1 MG, UNK
  5. CALCIUM WITH VITAMIN D [Concomitant]
     Dosage: 500 MG, UNK

REACTIONS (3)
  - Ulcerative keratitis [Unknown]
  - Injection site erythema [Unknown]
  - Injection site pruritus [Unknown]
